FAERS Safety Report 25466422 (Version 1)
Quarter: 2025Q2

REPORT INFORMATION
  Report Type: Spontaneous
  Country: JP (occurrence: JP)
  Receive Date: 20250623
  Receipt Date: 20250623
  Transmission Date: 20250717
  Serious: Yes (Death, Other)
  Sender: TAKEDA
  Company Number: JP-TAKEDA-2025TJP006168

PATIENT
  Age: 73 Year
  Sex: Male

DRUGS (2)
  1. FRUZAQLA [Suspect]
     Active Substance: FRUQUINTINIB
     Indication: Colorectal cancer recurrent
  2. FRUZAQLA [Suspect]
     Active Substance: FRUQUINTINIB

REACTIONS (2)
  - Malaise [Fatal]
  - Colorectal cancer recurrent [Fatal]
